FAERS Safety Report 5847056-7 (Version None)
Quarter: 2008Q3

REPORT INFORMATION
  Report Type: 
  Country: None (occurrence: None)
  Receive Date: 20080815
  Receipt Date: 20080805
  Transmission Date: 20090109
  Serious: Yes (Hospitalization, Other)
  Sender: FDA-Public Use
  Company Number: US-PFIZER INC-2008066107

PATIENT
  Sex: Male

DRUGS (4)
  1. CELEBREX [Suspect]
     Indication: ARTHRITIS
  2. CELEBREX [Suspect]
     Indication: BACK PAIN
  3. ACETYLSALICYLIC ACID SRT [Suspect]
     Indication: PAIN
     Dosage: TEXT:650 MG PER 2 TABLETS
  4. HYDROCODONE BITARTRATE + ACETAMINOPHEN [Concomitant]
     Dosage: TEXT:7.5 MG/500 MG

REACTIONS (6)
  - CHOLELITHIASIS [None]
  - INGUINAL HERNIA [None]
  - MEDICATION ERROR [None]
  - PLATELET COUNT INCREASED [None]
  - VARICOSE ULCERATION [None]
  - WHITE BLOOD CELL COUNT INCREASED [None]
